FAERS Safety Report 6637833-7 (Version None)
Quarter: 2010Q1

REPORT INFORMATION
  Report Type: 
  Country: None (occurrence: None)
  Receive Date: 20100317
  Receipt Date: 20100304
  Transmission Date: 20100710
  Serious: Yes (Other)
  Sender: FDA-Public Use
  Company Number: PHEH2010US02577

PATIENT
  Sex: Female
  Weight: 56.689 kg

DRUGS (10)
  1. RECLAST [Suspect]
     Indication: OSTEOPOROSIS
     Dosage: 5 MG, YEARLY
     Route: 042
     Dates: start: 20100202
  2. SINGULAIR [Concomitant]
  3. ADVAIR DISKUS 100/50 [Concomitant]
  4. ZOCOR [Concomitant]
  5. FLONASE [Concomitant]
  6. PEPCID [Concomitant]
  7. TRAZODONE HCL [Concomitant]
  8. LYRICA [Concomitant]
  9. VOLTAREN [Concomitant]
  10. NEXIUM [Concomitant]
     Dosage: DAILY
     Route: 048

REACTIONS (3)
  - ARTHRALGIA [None]
  - CONFUSIONAL STATE [None]
  - DYSPHAGIA [None]
